FAERS Safety Report 4505143-X (Version None)
Quarter: 2004Q4

REPORT INFORMATION
  Report Type: 
  Country: None (occurrence: None)
  Receive Date: 20041021
  Receipt Date: 20031222
  Transmission Date: 20050328
  Serious: Yes (Hospitalization, Other)
  Sender: FDA-Public Use
  Company Number: C2003-3314.02

PATIENT
  Age: 67 Year
  Sex: Female

DRUGS (2)
  1. BISOPROLOL FUMARATE AND HYDROCHLOROTHIAZIDE [Suspect]
     Indication: HYPERTENSION
     Dosage: 2.5 MG/6.25MG PRN, ORAL
     Route: 048
     Dates: start: 20031101, end: 20031212
  2. NAPROXEN SODIUM [Concomitant]

REACTIONS (2)
  - CHEST PAIN [None]
  - HYPERHIDROSIS [None]
